FAERS Safety Report 4505317-8 (Version None)
Quarter: 2004Q4

REPORT INFORMATION
  Report Type: 
  Country: None (occurrence: None)
  Receive Date: 20041015
  Receipt Date: 20040519
  Transmission Date: 20050328
  Serious: Yes (Hospitalization, Other)
  Sender: FDA-Public Use
  Company Number: 2004033866

PATIENT
  Age: 26 Year
  Sex: Female
  Weight: 58.9676 kg

DRUGS (4)
  1. NEURONTIN [Suspect]
     Indication: ANXIETY
     Dosage: 1200 MG (600 MG, BID INTERVAL: EVERY DAY), ORAL
     Route: 048
     Dates: start: 20030101, end: 20030101
  2. NEURONTIN [Suspect]
     Indication: BIPOLAR DISORDER
     Dosage: 1200 MG (600 MG, BID INTERVAL: EVERY DAY), ORAL
     Route: 048
     Dates: start: 20030101, end: 20030101
  3. NEURONTIN [Suspect]
     Indication: DEPRESSION
     Dosage: 1200 MG (600 MG, BID INTERVAL: EVERY DAY), ORAL
     Route: 048
     Dates: start: 20030101, end: 20030101
  4. ALL OTHER THERAPEUTIC PRODUCTS (ALL OTHER THERAPEUTIC PRODUCTS) [Concomitant]

REACTIONS (7)
  - AMNESIA [None]
  - CONVULSION [None]
  - DEPRESSION [None]
  - FALL [None]
  - FEELING ABNORMAL [None]
  - LOSS OF CONSCIOUSNESS [None]
  - ROAD TRAFFIC ACCIDENT [None]
